FAERS Safety Report 15670400 (Version 6)
Quarter: 2019Q2

REPORT INFORMATION
  Report Type: Spontaneous
  Country: US (occurrence: US)
  Receive Date: 20181129
  Receipt Date: 20190524
  Transmission Date: 20190711
  Serious: Yes (Other)
  Sender: FDA-Public Use
  Company Number: US-PFIZER INC-2018490832

PATIENT
  Age: 72 Year
  Sex: Female
  Weight: 50 kg

DRUGS (7)
  1. ELIQUIS [Interacting]
     Active Substance: APIXABAN
     Dosage: 2.5 MILLIGRAM, BID
     Route: 048
     Dates: start: 201811
  2. CARDIZEM [Interacting]
     Active Substance: DILTIAZEM HYDROCHLORIDE
     Dosage: 240 MG, DAILY
     Route: 065
     Dates: start: 201811
  3. OLEA EUROPAEA OIL [Interacting]
     Active Substance: OLIVE OIL
     Indication: GASTRIC DISORDER
     Dosage: UNK
     Route: 065
  4. CARDIZEM [Suspect]
     Active Substance: DILTIAZEM HYDROCHLORIDE
     Dosage: 120 MG, UNK
     Route: 065
  5. OMEPRAZOLE. [Interacting]
     Active Substance: OMEPRAZOLE
     Indication: GASTROOESOPHAGEAL REFLUX DISEASE
     Dosage: UNK
     Route: 065
  6. VERAPAMIL [Concomitant]
     Active Substance: VERAPAMIL HYDROCHLORIDE
     Dosage: UNK
     Route: 065
  7. ELIQUIS [Interacting]
     Active Substance: APIXABAN
     Indication: CEREBROVASCULAR ACCIDENT PROPHYLAXIS
     Dosage: 5 MG, 2X/DAY
     Route: 048
     Dates: start: 201810

REACTIONS (16)
  - Helicobacter infection [Unknown]
  - Infection [Unknown]
  - Fatigue [Unknown]
  - Weight decreased [Unknown]
  - Dysgeusia [Unknown]
  - Emotional distress [Unknown]
  - Asthenia [Unknown]
  - Drug interaction [Unknown]
  - Insomnia [Unknown]
  - Nervousness [Unknown]
  - Nausea [Unknown]
  - Dizziness [Unknown]
  - Heart rate increased [Unknown]
  - Abdominal pain upper [Unknown]
  - Decreased appetite [Unknown]
  - Gastrooesophageal reflux disease [Unknown]
